FAERS Safety Report 17754319 (Version 3)
Quarter: 2020Q2

REPORT INFORMATION
  Report Type: Report from Study
  Country: US (occurrence: US)
  Receive Date: 20200506
  Receipt Date: 20200526
  Transmission Date: 20200714
  Serious: Yes (Other)
  Sender: FDA-Public Use
  Company Number: NVSC2020US122209

PATIENT
  Age: 41 Year
  Sex: Female

DRUGS (2)
  1. GILENYA [Suspect]
     Active Substance: FINGOLIMOD HYDROCHLORIDE
     Indication: MULTIPLE SCLEROSIS
     Dosage: 0.5 MG, QD
     Route: 048
     Dates: start: 20200503
  2. GILENYA [Suspect]
     Active Substance: FINGOLIMOD HYDROCHLORIDE
     Dosage: 0.5 MG, QD
     Route: 048
     Dates: start: 20200512

REACTIONS (5)
  - Heart rate decreased [Unknown]
  - Urticaria [Unknown]
  - Atrioventricular block second degree [Unknown]
  - Dizziness postural [Unknown]
  - Atrioventricular block first degree [Unknown]

NARRATIVE: CASE EVENT DATE: 20200503
